FAERS Safety Report 7509579-4 (Version None)
Quarter: 2011Q2

REPORT INFORMATION
  Report Type: 
  Country: None (occurrence: None)
  Receive Date: 20110527
  Receipt Date: 20110520
  Transmission Date: 20111010
  Serious: No
  Sender: FDA-Public Use
  Company Number: JP-ABBOTT-11P-087-0718282-00

PATIENT
  Sex: Female

DRUGS (8)
  1. PREDNISOLONE [Concomitant]
     Indication: RHEUMATOID ARTHRITIS
     Route: 048
     Dates: start: 20100511
  2. CELECOXIB [Concomitant]
     Indication: RHEUMATOID ARTHRITIS
     Route: 048
     Dates: start: 20100511
  3. POLAPREZINC [Concomitant]
     Indication: RHEUMATOID ARTHRITIS
     Route: 048
     Dates: start: 20100511
  4. ESTRIOL [Concomitant]
     Indication: RHEUMATOID ARTHRITIS
     Dates: start: 20101130
  5. AMLODIPINE BESYLATE [Concomitant]
     Indication: RHEUMATOID ARTHRITIS
     Dates: start: 20101130
  6. HUMIRA [Suspect]
     Indication: RHEUMATOID ARTHRITIS
     Dates: start: 20110215, end: 20110215
  7. OMEPRAZOLE [Concomitant]
     Indication: RHEUMATOID ARTHRITIS
     Route: 048
     Dates: start: 20100817
  8. OLMESARTAN MEDOXOMIL [Concomitant]
     Indication: RHEUMATOID ARTHRITIS
     Dates: start: 20101130

REACTIONS (1)
  - ERYTHEMA [None]
